FAERS Safety Report 9233140 (Version 1)
Quarter: 2013Q1

REPORT INFORMATION
  Report Type: Spontaneous
  Country: US (occurrence: None)
  Receive Date: 20121031
  Receipt Date: 20121031
  Transmission Date: 20140127
  Serious: No
  Sender: FDA-Public Use
  Company Number: PHEH2012US012157

PATIENT
  Age: 39 Year
  Sex: Female
  Weight: 117.9 kg

DRUGS (4)
  1. GILENYA [Suspect]
     Indication: MULTIPLE SCLEROSIS
     Route: 048
     Dates: start: 20120618
  2. SKELAXIN (METAXOLONE) [Concomitant]
  3. MULTIVITAMINS (ASCORBIC ACID,ERGOCALCIFEROL, FOLIC AICD, NICOTAMIDE, PAHTENOL, RETINOL, RIBOFLAVIN, THIAMINE HYDROCHLORIDE) [Concomitant]
  4. ASPIRIN (ACETYLSALICYLIC ACID) [Concomitant]

REACTIONS (1)
  - Feeling abnormal [None]
